FAERS Safety Report 14535387 (Version 1)
Quarter: 2018Q1

REPORT INFORMATION
  Report Type: Spontaneous
  Country: US (occurrence: US)
  Receive Date: 20180215
  Receipt Date: 20180215
  Transmission Date: 20180509
  Serious: No
  Sender: FDA-Public Use
  Company Number: US-009507513-1802USA004366

PATIENT
  Sex: Female

DRUGS (2)
  1. ALBUTEROL SULFATE. [Concomitant]
     Active Substance: ALBUTEROL SULFATE
     Route: 055
  2. PROVENTIL [Suspect]
     Active Substance: ALBUTEROL
     Indication: ASTHMA
     Dosage: UNK
     Route: 055
     Dates: start: 20180203

REACTIONS (5)
  - Incorrect dose administered [Unknown]
  - Device issue [Unknown]
  - Product quality issue [Unknown]
  - Dizziness postural [Recovering/Resolving]
  - Dizziness exertional [Recovering/Resolving]

NARRATIVE: CASE EVENT DATE: 20180203
